FAERS Safety Report 12234586 (Version 2)
Quarter: 2016Q2

REPORT INFORMATION
  Report Type: Spontaneous
  Country: TR (occurrence: TR)
  Receive Date: 20160404
  Receipt Date: 20160412
  Transmission Date: 20160815
  Serious: Yes (Death)
  Sender: FDA-Public Use
  Company Number: TR-SUN PHARMACEUTICAL INDUSTRIES LTD-2016RR-114143

PATIENT
  Age: 23 Year
  Sex: Female

DRUGS (5)
  1. MIDAZOLAM [Suspect]
     Active Substance: MIDAZOLAM\MIDAZOLAM HYDROCHLORIDE
     Indication: COMPLETED SUICIDE
     Route: 065
  2. LIDOCAINE. [Suspect]
     Active Substance: LIDOCAINE
     Indication: COMPLETED SUICIDE
     Route: 065
  3. FLECAINIDE [Suspect]
     Active Substance: FLECAINIDE
     Indication: COMPLETED SUICIDE
     Dosage: EMPTY BOXES OF 30 TABLETS
     Route: 048
  4. SOTALOL. [Suspect]
     Active Substance: SOTALOL
     Indication: COMPLETED SUICIDE
     Dosage: EMPTY BOXES OF 20 TABLETS
     Route: 048
  5. ATROPINE. [Suspect]
     Active Substance: ATROPINE
     Indication: COMPLETED SUICIDE
     Route: 065

REACTIONS (5)
  - Overdose [Fatal]
  - Cardiac arrest [Fatal]
  - Cerebral congestion [Fatal]
  - Coma [Fatal]
  - Hyperaemia [Fatal]
